FAERS Safety Report 21743673 (Version 3)
Quarter: 2023Q1

REPORT INFORMATION
  Report Type: Spontaneous
  Country: BR (occurrence: BR)
  Receive Date: 20221217
  Receipt Date: 20230131
  Transmission Date: 20230417
  Serious: Yes (Other)
  Sender: FDA-Public Use
  Company Number: BR-Accord-292643

PATIENT

DRUGS (3)
  1. PACLITAXEL [Suspect]
     Active Substance: PACLITAXEL
     Indication: Breast neoplasm
     Dosage: IN THE CYCLE 1 DAY 15 (C1D15)
     Route: 042
     Dates: start: 2022
  2. PACLITAXEL [Suspect]
     Active Substance: PACLITAXEL
     Indication: Breast cancer
     Dosage: FIRST DAY OF CYCLE 2
     Route: 042
     Dates: start: 2022
  3. PACLITAXEL [Suspect]
     Active Substance: PACLITAXEL
     Indication: Breast neoplasm
     Dosage: IN CYCLE 2 DAY 8
     Route: 042
     Dates: start: 2022

REACTIONS (7)
  - Temperature intolerance [Recovered/Resolved]
  - Abdominal pain [Recovered/Resolved]
  - Speech sound disorder [Recovered/Resolved]
  - Hypoxia [Recovered/Resolved]
  - Flushing [Recovered/Resolved]
  - Back pain [Recovered/Resolved]
  - Pain in extremity [Recovered/Resolved]

NARRATIVE: CASE EVENT DATE: 20220101
